FAERS Safety Report 26141135 (Version 1)
Quarter: 2025Q4

REPORT INFORMATION
  Report Type: Spontaneous
  Country: US (occurrence: US)
  Receive Date: 20251210
  Receipt Date: 20251210
  Transmission Date: 20260117
  Serious: No
  Sender: PFIZER
  Company Number: US-PFIZER INC-202500237353

PATIENT
  Age: 7 Decade
  Sex: Female

DRUGS (1)
  1. CYTOMEL [Suspect]
     Active Substance: LIOTHYRONINE SODIUM
     Dosage: UNK

REACTIONS (4)
  - Nasopharyngitis [Unknown]
  - Hypertension [Unknown]
  - Blood glucose increased [Unknown]
  - Drug intolerance [Unknown]
